FAERS Safety Report 25239439 (Version 1)
Quarter: 2025Q2

REPORT INFORMATION
  Report Type: Spontaneous
  Country: US (occurrence: US)
  Receive Date: 20250425
  Receipt Date: 20250425
  Transmission Date: 20250716
  Serious: No
  Sender: YUNG SHIN PHARMACEUTICAL INDUSTRIAL
  Company Number: US-Yung Shin Pharmaceutical Ind.  Co., Ltd.-2175578

PATIENT
  Sex: Female

DRUGS (1)
  1. CEFACLOR [Suspect]
     Active Substance: CEFACLOR

REACTIONS (1)
  - Vomiting [Unknown]
